FAERS Safety Report 5161662-7 (Version None)
Quarter: 2006Q4

REPORT INFORMATION
  Report Type: 
  Country: None (occurrence: None)
  Receive Date: 20061130
  Receipt Date: 20060405
  Transmission Date: 20070319
  Serious: No
  Sender: FDA-Public Use
  Company Number: US-BRISTOL-MYERS SQUIBB COMPANY-13337530

PATIENT
  Age: 28 Year
  Sex: Female

DRUGS (1)
  1. GLUCOPHAGE XR [Suspect]
     Indication: WEIGHT CONTROL
     Dates: start: 20060101

REACTIONS (1)
  - ALOPECIA [None]
